FAERS Safety Report 7480152-X (Version None)
Quarter: 2011Q2

REPORT INFORMATION
  Report Type: 
  Country: None (occurrence: None)
  Receive Date: 20110516
  Receipt Date: 20110505
  Transmission Date: 20111010
  Serious: No
  Sender: FDA-Public Use
  Company Number: US-BIOGENIDEC-2011BI017295

PATIENT
  Sex: Female

DRUGS (1)
  1. TYSABRI [Suspect]
     Indication: MULTIPLE SCLEROSIS
     Route: 042
     Dates: start: 20110329

REACTIONS (5)
  - DIARRHOEA [None]
  - VISION BLURRED [None]
  - EAR DISORDER [None]
  - CHEST DISCOMFORT [None]
  - FATIGUE [None]
